FAERS Safety Report 12635192 (Version 1)
Quarter: 2016Q3

REPORT INFORMATION
  Report Type: Spontaneous
  Country: GB (occurrence: GB)
  Receive Date: 20160809
  Receipt Date: 20160809
  Transmission Date: 20161109
  Serious: Yes (Other)
  Sender: FDA-Public Use
  Company Number: GB-JNJFOC-20160720888

PATIENT
  Age: 18 Year
  Sex: Female
  Weight: 65 kg

DRUGS (2)
  1. REMICADE [Suspect]
     Active Substance: INFLIXIMAB
     Indication: CROHN^S DISEASE
     Dosage: STRENGTH: 300 MG
     Route: 042
     Dates: start: 20160516, end: 20160516
  2. REMICADE [Suspect]
     Active Substance: INFLIXIMAB
     Indication: CROHN^S DISEASE
     Route: 042
     Dates: start: 2011

REACTIONS (3)
  - Adverse event [Unknown]
  - Abortion spontaneous [Recovering/Resolving]
  - Exposure during pregnancy [Unknown]

NARRATIVE: CASE EVENT DATE: 20160711
